FAERS Safety Report 25666480 (Version 1)
Quarter: 2025Q3

REPORT INFORMATION
  Report Type: Spontaneous
  Country: US (occurrence: US)
  Receive Date: 20250811
  Receipt Date: 20250811
  Transmission Date: 20251020
  Serious: No
  Sender: SANOFI AVENTIS
  Company Number: US-SA-2025SA230425

PATIENT
  Sex: Male
  Weight: 96.6 kg

DRUGS (1)
  1. KEVZARA [Suspect]
     Active Substance: SARILUMAB
     Indication: Dermatitis atopic
     Dosage: 200 MG, QOW
     Route: 058

REACTIONS (4)
  - Acne [Unknown]
  - Pruritus [Unknown]
  - Lethargy [Not Recovered/Not Resolved]
  - Product use in unapproved indication [Unknown]
